FAERS Safety Report 16920311 (Version 1)
Quarter: 2019Q4

REPORT INFORMATION
  Report Type: Spontaneous
  Country: AU (occurrence: AU)
  Receive Date: 20191015
  Receipt Date: 20191015
  Transmission Date: 20200122
  Serious: Yes (Other)
  Sender: FDA-Public Use
  Company Number: PHHY2019AU228244

PATIENT
  Age: 36 Year
  Sex: Female

DRUGS (1)
  1. PARACETAMOL [Suspect]
     Active Substance: ACETAMINOPHEN
     Indication: PYREXIA
     Route: 065

REACTIONS (7)
  - C-reactive protein increased [Unknown]
  - Lymphopenia [Unknown]
  - Vomiting [Unknown]
  - Premature delivery [Unknown]
  - Decreased appetite [Unknown]
  - Weight decreased [Unknown]
  - Maternal exposure during pregnancy [Unknown]
